FAERS Safety Report 12154663 (Version 1)
Quarter: 2016Q1

REPORT INFORMATION
  Report Type: Spontaneous
  Country: IL (occurrence: IL)
  Receive Date: 20160307
  Receipt Date: 20160307
  Transmission Date: 20160526
  Serious: Yes (Death)
  Sender: FDA-Public Use
  Company Number: PHHY2016IL028528

PATIENT
  Age: 22 Year
  Sex: Male

DRUGS (1)
  1. EXJADE [Suspect]
     Active Substance: DEFERASIROX
     Indication: SERUM FERRITIN INCREASED
     Dosage: 20 MG/KG, QD
     Route: 065

REACTIONS (3)
  - Organ failure [Fatal]
  - Pneumonia [Fatal]
  - Transplant rejection [Fatal]
